FAERS Safety Report 10473270 (Version 2)
Quarter: 2014Q3

REPORT INFORMATION
  Report Type: Report from Study
  Country: US (occurrence: US)
  Receive Date: 20140924
  Receipt Date: 20140924
  Transmission Date: 20150326
  Serious: No
  Sender: FDA-Public Use
  Company Number: US-009507513-1407USA012389

PATIENT
  Age: 74 Year
  Sex: Male

DRUGS (5)
  1. PEMBROLIZUMAB. [Suspect]
     Active Substance: PEMBROLIZUMAB
     Indication: METASTATIC MALIGNANT MELANOMA
     Dosage: STRENGTH 2 MG/KG , Q3W, TOTAL DAILY DOSE: 2 MG/KG
     Route: 042
     Dates: start: 20140611, end: 20140611
  2. PEMBROLIZUMAB. [Suspect]
     Active Substance: PEMBROLIZUMAB
     Dosage: STRENGTH 2 MG/KG , Q3W, TOTAL DAILY DOSE: 2 MG/KG
     Route: 042
     Dates: start: 20140701, end: 20140701
  3. PEMBROLIZUMAB. [Suspect]
     Active Substance: PEMBROLIZUMAB
     Dosage: STRENGTH: 2 MG/KG, Q3W, TOTAL DAILY DOSE: 2 MG/KG
     Route: 042
     Dates: start: 20140813, end: 20140903
  4. PEMBROLIZUMAB. [Suspect]
     Active Substance: PEMBROLIZUMAB
     Dosage: STRENGTH: 2 MG/KG, Q3W, TOTAL DAILY DOSE: 2 MG/KG
     Route: 042
     Dates: start: 20140702, end: 20140702
  5. PEMBROLIZUMAB. [Suspect]
     Active Substance: PEMBROLIZUMAB
     Dosage: STRENGTH: 2 MG/KG, Q3W, TOTAL DAILY DOSE: 2 MG/KG
     Route: 042
     Dates: start: 20140722, end: 20140722

REACTIONS (4)
  - Enteritis [Recovered/Resolved]
  - Rash maculo-papular [Recovered/Resolved]
  - Lymphocyte count decreased [Not Recovered/Not Resolved]
  - Mucosal inflammation [Not Recovered/Not Resolved]

NARRATIVE: CASE EVENT DATE: 20140612
